FAERS Safety Report 25089034 (Version 3)
Quarter: 2025Q1

REPORT INFORMATION
  Report Type: Report from Study
  Country: US (occurrence: US)
  Receive Date: 20250318
  Receipt Date: 20250326
  Transmission Date: 20250409
  Serious: No
  Sender: SANDOZ
  Company Number: US-SANDOZ-SDZ2025US016171

PATIENT
  Sex: Female

DRUGS (1)
  1. GLATOPA [Suspect]
     Active Substance: GLATIRAMER ACETATE
     Indication: Product used for unknown indication
     Route: 058

REACTIONS (6)
  - Swelling [Unknown]
  - Skin irritation [Unknown]
  - Rash [Unknown]
  - Injection site haemorrhage [Unknown]
  - Injection site pain [Unknown]
  - Device issue [Unknown]
